FAERS Safety Report 5061404-X (Version None)
Quarter: 2006Q3

REPORT INFORMATION
  Report Type: 
  Country: None (occurrence: None)
  Receive Date: 20060725
  Receipt Date: 20060125
  Transmission Date: 20061208
  Serious: Yes (Hospitalization, Other)
  Sender: FDA-Public Use
  Company Number: GB-BOEHRINGER INGELHEIM PHARMACEUTICALS, INC.-2006-UK-00334UK

PATIENT
  Sex: Male
  Weight: 55 kg

DRUGS (4)
  1. TIPRANAVIR/RITONAVIR [Suspect]
     Indication: HIV INFECTION
     Dosage: 1000MG/RTV 400MG
     Dates: start: 20050913
  2. DDI [Concomitant]
  3. ENFUVIRTIDE [Concomitant]
  4. TENOFOVIR [Concomitant]

REACTIONS (5)
  - AUTOIMMUNE HEPATITIS [None]
  - CD4 LYMPHOCYTES INCREASED [None]
  - EOSINOPHILIA [None]
  - HEPATITIS [None]
  - HEPATOTOXICITY [None]
